FAERS Safety Report 8844668 (Version 1)
Quarter: 2012Q4

REPORT INFORMATION
  Report Type: Spontaneous
  Country: US (occurrence: None)
  Receive Date: 20121016
  Receipt Date: 20121016
  Transmission Date: 20130627
  Serious: Yes (Hospitalization)
  Sender: FDA-Public Use
  Company Number: None

PATIENT
  Age: 69 Year
  Sex: Male
  Weight: 90 kg

DRUGS (8)
  1. COUMADIN [Suspect]
     Indication: DVT OF LEGS
     Dosage: RECENT
     Route: 048
  2. ZYLOPRIM [Suspect]
     Indication: GOUT
     Route: 048
  3. PROAIR [Concomitant]
  4. FLUTICASONE [Concomitant]
  5. PRAVACHOL [Concomitant]
  6. OXYCODONE [Concomitant]
  7. SENOKOT [Concomitant]
  8. B12 [Concomitant]

REACTIONS (7)
  - Haematuria [None]
  - Haemoglobin decreased [None]
  - Haematocrit decreased [None]
  - International normalised ratio increased [None]
  - Device dislocation [None]
  - Pain [None]
  - Pneumonia [None]
